FAERS Safety Report 6925317-8 (Version None)
Quarter: 2010Q3

REPORT INFORMATION
  Report Type: 
  Country: None (occurrence: None)
  Receive Date: 20100811
  Receipt Date: 20100726
  Transmission Date: 20110219
  Serious: Yes (Other)
  Sender: FDA-Public Use
  Company Number: JHP201000224

PATIENT
  Sex: Male

DRUGS (1)
  1. DANTRIUM [Suspect]
     Dosage: 75 MG, DAILY, ORAL
     Route: 048

REACTIONS (1)
  - GLOSSOPTOSIS [None]
